FAERS Safety Report 8277080-9 (Version None)
Quarter: 2012Q2

REPORT INFORMATION
  Report Type: 
  Country: None (occurrence: None)
  Receive Date: 20120412
  Receipt Date: 20120406
  Transmission Date: 20120825
  Serious: Yes (Hospitalization)
  Sender: FDA-Public Use
  Company Number: PHHY2012FR029469

PATIENT
  Age: 78 Year
  Sex: Female
  Weight: 55 kg

DRUGS (8)
  1. SPIRIVA [Concomitant]
     Dates: start: 20050101
  2. OMEPRAZOLE [Concomitant]
     Dates: start: 20050101
  3. ACETAMINOPHEN [Concomitant]
  4. VITAMIN D [Concomitant]
     Dates: start: 20111201
  5. CALCIUM CARBONATE [Concomitant]
     Dosage: UNK
     Dates: end: 20120301
  6. FLUTICASONE PROPIONATE/SALMETEROL [Concomitant]
     Dates: start: 20050101
  7. ZOLEDRONOC ACID [Suspect]
     Indication: OSTEOPOROSIS
     Route: 042
     Dates: start: 20120207
  8. VENTOLIN [Concomitant]
     Dates: start: 20050101

REACTIONS (2)
  - MYELITIS [None]
  - DIPLEGIA [None]
